FAERS Safety Report 7927812-1 (Version None)
Quarter: 2011Q4

REPORT INFORMATION
  Report Type: 
  Country: None (occurrence: None)
  Receive Date: 20111118
  Receipt Date: 20111114
  Transmission Date: 20120403
  Serious: Yes (Hospitalization)
  Sender: FDA-Public Use
  Company Number: US-SANOFI-AVENTIS-2011SA075139

PATIENT
  Age: 69 Year
  Sex: Male

DRUGS (9)
  1. LANTUS [Suspect]
     Route: 058
  2. DEXAMETHASONE [Concomitant]
     Dosage: ON DAYS 1, 8, 15, AND 22
     Route: 048
     Dates: start: 20110726
  3. HUMALOG [Suspect]
     Route: 065
  4. LENALIDOMIDE [Suspect]
     Route: 048
     Dates: start: 20110917, end: 20110926
  5. METFORMIN HCL [Suspect]
     Route: 065
  6. ASPIRIN [Concomitant]
  7. LENALIDOMIDE [Suspect]
     Indication: MULTIPLE MYELOMA
     Dosage: ON DAYS 1-21
     Route: 048
     Dates: start: 20110726
  8. DEXAMETHASONE [Concomitant]
     Route: 048
     Dates: start: 20110917
  9. COUMADIN [Concomitant]

REACTIONS (2)
  - HYPOGLYCAEMIA [None]
  - HYPOKALAEMIA [None]
